FAERS Safety Report 7681169-2 (Version None)
Quarter: 2011Q3

REPORT INFORMATION
  Report Type: 
  Country: None (occurrence: None)
  Receive Date: 20110812
  Receipt Date: 20110804
  Transmission Date: 20111222
  Serious: Yes (Hospitalization)
  Sender: FDA-Public Use
  Company Number: BR-MEDIMMUNE-MEDI-0013422

PATIENT
  Sex: Male
  Weight: 7 kg

DRUGS (3)
  1. DIGOXIN [Concomitant]
     Route: 048
  2. SYNAGIS [Suspect]
     Indication: CARDIAC DISORDER
     Route: 030
     Dates: start: 20110602, end: 20110602
  3. CAPTOPRIL [Concomitant]
     Indication: PULMONARY HYPERTENSION
     Dosage: 0.25 TABLET DILUTED IN 0.4ML OF WATER
     Route: 048

REACTIONS (7)
  - PNEUMONIA [None]
  - PYREXIA [None]
  - NASAL CONGESTION [None]
  - DYSPNOEA [None]
  - ANAEMIA [None]
  - CRYING [None]
  - COUGH [None]
